FAERS Safety Report 9951696 (Version 1)
Quarter: 2014Q1

REPORT INFORMATION
  Report Type: Report from Study
  Country: US (occurrence: US)
  Receive Date: 20140304
  Receipt Date: 20140304
  Transmission Date: 20141002
  Serious: No
  Sender: FDA-Public Use
  Company Number: US-ABBVIE-13P-163-1073524-00

PATIENT
  Age: 54 Year
  Sex: Female

DRUGS (7)
  1. HUMIRA [Suspect]
     Indication: PSORIASIS
     Dates: start: 20121218, end: 20130321
  2. CYMBALTA [Concomitant]
     Indication: DEPRESSION
     Dosage: 90 MG DAILY
  3. CYMBALTA [Concomitant]
     Indication: PAIN
  4. NABUMETONE [Concomitant]
     Indication: ARTHRALGIA
  5. NABUMETONE [Concomitant]
     Indication: ARTHRITIS
  6. CYCLOBENZAPRINE [Concomitant]
     Indication: PAIN
     Dosage: AT BEDTIME
  7. LEVOTHYROXINE [Concomitant]
     Indication: HYPOTHYROIDISM
     Dosage: 0.05 MG DAILY

REACTIONS (3)
  - Rash [Not Recovered/Not Resolved]
  - Psoriasis [Not Recovered/Not Resolved]
  - Drug ineffective [Not Recovered/Not Resolved]
